FAERS Safety Report 4810464-7 (Version None)
Quarter: 2005Q4

REPORT INFORMATION
  Report Type: 
  Country: None (occurrence: None)
  Receive Date: 20051025
  Receipt Date: 20051025
  Transmission Date: 20060501
  Serious: Yes (Hospitalization)
  Sender: FDA-Public Use
  Company Number: None

PATIENT
  Age: 45 Year
  Sex: Male

DRUGS (6)
  1. VANCOMYCIN [Suspect]
     Dosage: 1GM IV Q24H
     Route: 042
     Dates: start: 20050915, end: 20051006
  2. HYDROCHLOROTHIAZIDE [Suspect]
     Dosage: 25MG PO QD
     Route: 048
     Dates: start: 20050801, end: 20051024
  3. HYDROCHLOROTHIAZIDE [Concomitant]
  4. OMEPRAZOLE [Concomitant]
  5. VANCOMYCIN HCL [Concomitant]
  6. IBUPROFEN [Concomitant]

REACTIONS (2)
  - DRUG LEVEL INCREASED [None]
  - RENAL FAILURE [None]
